FAERS Safety Report 7997350-9 (Version None)
Quarter: 2011Q4

REPORT INFORMATION
  Report Type: 
  Country: None (occurrence: None)
  Receive Date: 20111221
  Receipt Date: 20111216
  Transmission Date: 20120403
  Serious: Yes (Hospitalization)
  Sender: FDA-Public Use
  Company Number: GB-B.I. PHARMACEUTICALS,INC./RIDGEFIELD-2011-RD-00143DE

PATIENT
  Sex: Female
  Weight: 66 kg

DRUGS (2)
  1. TRIAL PROCEDURE [Suspect]
     Indication: CYSTIC FIBROSIS
  2. TIOPRONIN [Suspect]
     Indication: CYSTIC FIBROSIS
     Dosage: 5 MCG
     Route: 055
     Dates: start: 20110601

REACTIONS (1)
  - LUNG DISORDER [None]
